FAERS Safety Report 16031512 (Version 1)
Quarter: 2019Q1

REPORT INFORMATION
  Report Type: Other
  Country: None (occurrence: US)
  Receive Date: 20190304
  Receipt Date: 20190304
  Transmission Date: 20190418
  Serious: Yes (Death, Hospitalization)
  Sender: FDA-Public Use
  Company Number: US-MEDAC PHARMA, INC.-2063519

PATIENT
  Age: 13 Year
  Sex: Female
  Weight: 42.3 kg

DRUGS (5)
  1. MITOXANTRONE [Suspect]
     Active Substance: MITOXANTRONE HYDROCHLORIDE
  2. VINCRISTINE SULFATE. [Suspect]
     Active Substance: VINCRISTINE SULFATE
  3. DEXAMETHASONE. [Suspect]
     Active Substance: DEXAMETHASONE
  4. ONCASPAR [Suspect]
     Active Substance: PEGASPARGASE
  5. METHOTREXATE. [Suspect]
     Active Substance: METHOTREXATE

REACTIONS (11)
  - Candida infection [Unknown]
  - Ileus [Unknown]
  - Pathogen resistance [Unknown]
  - Cardiac arrest [Fatal]
  - Oesophageal candidiasis [Unknown]
  - Respiratory failure [Fatal]
  - Systemic candida [Unknown]
  - Cardiac failure [Fatal]
  - Renal failure [Fatal]
  - Pancreatitis [Unknown]
  - Septic shock [Fatal]

NARRATIVE: CASE EVENT DATE: 20181109
